FAERS Safety Report 9888437 (Version 2)
Quarter: 2014Q1

REPORT INFORMATION
  Report Type: Spontaneous
  Country: ES (occurrence: ES)
  Receive Date: 20140211
  Receipt Date: 20140310
  Transmission Date: 20141002
  Serious: Yes (Hospitalization)
  Sender: FDA-Public Use
  Company Number: ES-PFIZER INC-2014034215

PATIENT
  Age: 59 Year
  Sex: Male

DRUGS (13)
  1. PREVENAR 13 [Suspect]
     Indication: IMMUNISATION
     Dosage: SINGLE DOSE
     Route: 030
     Dates: start: 20131230, end: 20131230
  2. CELECOXIB [Suspect]
     Dosage: UNK
     Route: 048
     Dates: start: 20131227, end: 20140103
  3. INFLUENZA VACCINE [Suspect]
     Indication: IMMUNISATION
     Dosage: SINGLE DOSE
     Route: 030
     Dates: start: 20131230, end: 20131230
  4. OMEPRAZOLE [Concomitant]
     Dosage: 20 MG, 1X/DAY
     Route: 048
  5. SIMVASTATIN [Concomitant]
     Dosage: 40 MG, 1X/DAY
     Route: 048
  6. AMOXYCILLIN/CLAVULANIC ACID [Concomitant]
     Dosage: UNK
     Route: 048
     Dates: start: 20140102, end: 20140112
  7. ADIRO [Concomitant]
     Dosage: 300 MG, 1X/DAY
     Route: 048
  8. APOCARD [Concomitant]
     Dosage: 200 MG, 1X/DAY
     Route: 048
  9. FOSTER NEXTHALER [Concomitant]
     Dosage: UNK
     Route: 055
  10. MASDIL [Concomitant]
     Dosage: 120 MG, 1X/DAY
     Route: 048
     Dates: start: 20131227
  11. SINGULAIR [Concomitant]
     Dosage: 10 MG, 1X/DAY
     Route: 048
  12. SPIRIVA [Concomitant]
     Route: 055
  13. TERBASMIN TURBUHALER [Concomitant]
     Dosage: UNK
     Route: 055
     Dates: start: 20131227, end: 20140103

REACTIONS (2)
  - Asthma [Recovered/Resolved]
  - Respiratory tract infection [Recovered/Resolved]
